FAERS Safety Report 15462355 (Version 3)
Quarter: 2018Q4

REPORT INFORMATION
  Report Type: Spontaneous
  Country: US (occurrence: US)
  Receive Date: 20181004
  Receipt Date: 20181116
  Transmission Date: 20190204
  Serious: No
  Sender: FDA-Public Use
  Company Number: US-AMGEN-USASP2018135678

PATIENT
  Age: 72 Year
  Sex: Male
  Weight: 109.4 kg

DRUGS (3)
  1. NPLATE [Suspect]
     Active Substance: ROMIPLOSTIM
     Indication: IMMUNE THROMBOCYTOPENIC PURPURA
     Dosage: UNK
     Route: 065
     Dates: start: 201507
  2. NPLATE [Suspect]
     Active Substance: ROMIPLOSTIM
     Dosage: 106 MUG, UNK
     Route: 065
     Dates: start: 20180917
  3. NPLATE [Suspect]
     Active Substance: ROMIPLOSTIM
     Dosage: 219 MUG, UNK
     Route: 065
     Dates: start: 20180924

REACTIONS (1)
  - Therapy non-responder [Unknown]

NARRATIVE: CASE EVENT DATE: 2018
